FAERS Safety Report 16132243 (Version 1)
Quarter: 2019Q1

REPORT INFORMATION
  Report Type: Spontaneous
  Country: US (occurrence: US)
  Receive Date: 20190329
  Receipt Date: 20190329
  Transmission Date: 20190418
  Serious: Yes (Other)
  Sender: FDA-Public Use
  Company Number: US-TEVA-2019-US-1031696

PATIENT
  Sex: Male
  Weight: 81 kg

DRUGS (3)
  1. AUSTEDO [Suspect]
     Active Substance: DEUTETRABENAZINE
     Indication: TARDIVE DYSKINESIA
  2. CLONIDINE. [Concomitant]
     Active Substance: CLONIDINE
  3. DEPAKOTE [Concomitant]
     Active Substance: DIVALPROEX SODIUM

REACTIONS (6)
  - Gait inability [Unknown]
  - Bedridden [Unknown]
  - Feeding disorder [Unknown]
  - Pain [Unknown]
  - Lethargy [Unknown]
  - Abdominal pain upper [Unknown]
